FAERS Safety Report 8432168-4 (Version None)
Quarter: 2012Q2

REPORT INFORMATION
  Report Type: 
  Country: None (occurrence: None)
  Receive Date: 20120613
  Receipt Date: 20120606
  Transmission Date: 20120825
  Serious: Yes (Other)
  Sender: FDA-Public Use
  Company Number: PHEH2012US011615

PATIENT
  Sex: Female
  Weight: 74.83 kg

DRUGS (12)
  1. MIRALAX [Concomitant]
  2. COUMADIN [Concomitant]
     Dosage: 1 MG, UNK
  3. NORTRIPTYLINE HYDROCHLORIDE [Concomitant]
     Dosage: 75 MG, UNK
  4. FLUCONAZOLE [Concomitant]
     Dosage: 50 MG, UNK
  5. ROXANOL [Concomitant]
     Dosage: 20 MG/ML, UNK
  6. POTASSIUM [Concomitant]
     Dosage: 75 MG, UNK
  7. MS CONTIN [Concomitant]
     Dosage: 100 MG, UNK
  8. DILAUDID [Concomitant]
     Dosage: 2 MG, UNK
  9. FOLIC ACID [Concomitant]
  10. XANAX [Concomitant]
     Dosage: 1 MG, UNK
  11. EXJADE [Suspect]
     Indication: IRON OVERLOAD
     Dosage: 250 MG, QD
     Route: 048
  12. BENADRYL [Concomitant]
     Dosage: 25 MG, UNK
     Route: 048

REACTIONS (3)
  - CONSTIPATION [None]
  - DIARRHOEA [None]
  - DEHYDRATION [None]
